FAERS Safety Report 14377937 (Version 3)
Quarter: 2018Q2

REPORT INFORMATION
  Report Type: Spontaneous
  Country: CA (occurrence: CA)
  Receive Date: 20180111
  Receipt Date: 20180627
  Transmission Date: 20180711
  Serious: Yes (Other)
  Sender: FDA-Public Use
  Company Number: CA-PFIZER INC-2016399791

PATIENT
  Age: 60 Year
  Sex: Male

DRUGS (5)
  1. VIAGRA [Suspect]
     Active Substance: SILDENAFIL CITRATE
     Indication: PULMONARY HYPERTENSION
     Dosage: 200 MG, 3X/DAY
     Route: 048
  2. TRACLEER [Concomitant]
     Active Substance: BOSENTAN
     Dosage: UNK
  3. COUMADIN [Concomitant]
     Active Substance: WARFARIN SODIUM
     Indication: ANTICOAGULANT THERAPY
     Dosage: UNK
  4. VIAGRA [Suspect]
     Active Substance: SILDENAFIL CITRATE
     Indication: RIGHT-TO-LEFT CARDIAC SHUNT
  5. VIAGRA [Suspect]
     Active Substance: SILDENAFIL CITRATE
     Indication: ANOMALOUS PULMONARY VENOUS CONNECTION
     Dosage: 75 MG, 3X/DAY
     Route: 048

REACTIONS (9)
  - Fluid retention [Unknown]
  - Prescribed overdose [Unknown]
  - Pre-existing condition improved [Unknown]
  - Hepatic congestion [Not Recovered/Not Resolved]
  - Hepatic function abnormal [Not Recovered/Not Resolved]
  - Product use in unapproved indication [Unknown]
  - Walking distance test abnormal [Unknown]
  - Therapeutic response unexpected [Unknown]
  - Drug ineffective for unapproved indication [Unknown]
